FAERS Safety Report 9217193 (Version 1)
Quarter: 2013Q2

REPORT INFORMATION
  Report Type: Spontaneous
  Country: RU (occurrence: RU)
  Receive Date: 20130408
  Receipt Date: 20130408
  Transmission Date: 20140414
  Serious: Yes (Death)
  Sender: FDA-Public Use
  Company Number: RU-ROCHE-1205931

PATIENT
  Sex: Male

DRUGS (3)
  1. ACTILYSE [Suspect]
     Indication: PULMONARY EMBOLISM
     Route: 013
  2. UROKINASE [Concomitant]
     Indication: PULMONARY EMBOLISM
     Route: 042
  3. HEPARIN [Concomitant]
     Indication: PULMONARY EMBOLISM
     Route: 058

REACTIONS (3)
  - Renal failure acute [Fatal]
  - Renal vein thrombosis [Fatal]
  - Drug ineffective [Fatal]
